FAERS Safety Report 4594239-2 (Version None)
Quarter: 2005Q1

REPORT INFORMATION
  Report Type: 
  Country: None (occurrence: None)
  Receive Date: 20050223
  Receipt Date: 20050210
  Transmission Date: 20050727
  Serious: Yes (Hospitalization, Other)
  Sender: FDA-Public Use
  Company Number: USA-2005-0018832

PATIENT
  Age: 80 Year
  Sex: Female

DRUGS (1)
  1. OXYCONTIN [Suspect]
     Indication: CANCER PAIN
     Dosage: 10 MG, TID;

REACTIONS (3)
  - BONE CANCER METASTATIC [None]
  - INADEQUATE ANALGESIA [None]
  - MALIGNANT NEOPLASM PROGRESSION [None]
